FAERS Safety Report 4577724-9 (Version None)
Quarter: 2005Q1

REPORT INFORMATION
  Report Type: 
  Country: None (occurrence: None)
  Receive Date: 20050208
  Receipt Date: 20050131
  Transmission Date: 20050727
  Serious: Yes (Life-Threatening, Hospitalization)
  Sender: FDA-Public Use
  Company Number: 2004SE03748

PATIENT
  Age: 56 Year
  Sex: Male

DRUGS (5)
  1. BLOPRESS [Suspect]
     Indication: HYPERTENSION
     Dosage: 2 MG QD PO
     Route: 048
     Dates: start: 20040406, end: 20040615
  2. WARFARIN SODIUM [Suspect]
     Dosage: 3.2 MG QD PO
     Route: 048
     Dates: start: 20040410, end: 20040615
  3. GASTER [Suspect]
     Dosage: 10 MG QD PO
     Route: 048
     Dates: start: 20040416, end: 20040615
  4. RYTHMODAN [Suspect]
     Dosage: 300 MG QD PO
     Route: 048
     Dates: start: 20040423, end: 20040615
  5. PERSANTIN [Suspect]
     Dosage: 150 MG QD PO
     Route: 048
     Dates: start: 20040423, end: 20040615

REACTIONS (10)
  - ARRHYTHMIA [None]
  - EPISTAXIS [None]
  - HAEMODIALYSIS [None]
  - HEPATIC ATROPHY [None]
  - HEPATIC ENCEPHALOPATHY [None]
  - HEPATIC FAILURE [None]
  - HEPATITIS FULMINANT [None]
  - HEPATOTOXICITY [None]
  - LIVER TRANSPLANT [None]
  - POST PROCEDURAL COMPLICATION [None]
